FAERS Safety Report 19034967 (Version 1)
Quarter: 2021Q1

REPORT INFORMATION
  Report Type: Report from Study
  Country: DE (occurrence: DE)
  Receive Date: 20210320
  Receipt Date: 20210320
  Transmission Date: 20210420
  Serious: Yes (Death, Hospitalization, Other)
  Sender: FDA-Public Use
  Company Number: PHHY2019DE003634

PATIENT
  Sex: Female
  Weight: 100 kg

DRUGS (2)
  1. KISQALI [Suspect]
     Active Substance: RIBOCICLIB
     Indication: BREAST CANCER METASTATIC
     Dosage: 200 MG, TID
     Route: 048
     Dates: start: 20180215, end: 20180919
  2. ANASTROZOLE. [Suspect]
     Active Substance: ANASTROZOLE
     Indication: BREAST CANCER METASTATIC
     Dosage: 1 MG, QD
     Route: 048
     Dates: start: 20180208, end: 20180919

REACTIONS (13)
  - Gastrointestinal disorder [Recovered/Resolved]
  - Leukopenia [Recovered/Resolved]
  - Heparin-induced thrombocytopenia [Not Recovered/Not Resolved]
  - Haemoglobin decreased [Unknown]
  - Leukopenia [Recovered/Resolved]
  - Blood lactate dehydrogenase increased [Not Recovered/Not Resolved]
  - Death [Fatal]
  - Renal failure [Not Recovered/Not Resolved]
  - Thrombocytopenia [Recovered/Resolved]
  - Blood creatinine increased [Unknown]
  - Cardiac failure [Recovering/Resolving]
  - Aortic stenosis [Not Recovered/Not Resolved]
  - Gamma-glutamyltransferase increased [Recovered/Resolved]

NARRATIVE: CASE EVENT DATE: 20180314
